FAERS Safety Report 4567518-2 (Version None)
Quarter: 2005Q1

REPORT INFORMATION
  Report Type: 
  Country: None (occurrence: None)
  Receive Date: 20050201
  Receipt Date: 20050107
  Transmission Date: 20050727
  Serious: Yes (Death, Disabling, Other)
  Sender: FDA-Public Use
  Company Number: US-MERCK-0501USA00759

PATIENT
  Age: 73 Year
  Sex: Male

DRUGS (2)
  1. PRIMAXIN [Suspect]
     Indication: PNEUMONIA ESCHERICHIA
     Route: 042
     Dates: start: 20041224, end: 20050116
  2. [THERAPY UNSPECIFIED] [Concomitant]
     Route: 065

REACTIONS (3)
  - CONVULSION [None]
  - DEATH [None]
  - THERAPY NON-RESPONDER [None]
